FAERS Safety Report 4864183-1 (Version None)
Quarter: 2005Q4

REPORT INFORMATION
  Report Type: 
  Country: None (occurrence: None)
  Receive Date: 20051219
  Receipt Date: 20051206
  Transmission Date: 20060501
  Serious: Yes (Hospitalization)
  Sender: FDA-Public Use
  Company Number: 2005166504

PATIENT
  Age: 57 Year
  Sex: 0

DRUGS (3)
  1. DOXORUBICIN HCL [Suspect]
     Indication: BREAST CANCER
     Dosage: 95.5 MG, CYCLICAL, INTRAVENOUS
     Route: 042
     Dates: start: 20051102
  2. CYCLOPHOSPHAMIDE [Suspect]
     Indication: BREAST CANCER
     Dosage: 955 MG, CYCLICAL, INTRAVENOUS
     Route: 042
     Dates: start: 20051102
  3. DOCETAXEL (DOCETAXEL) [Suspect]
     Indication: BREAST CANCER
     Dosage: 143. 25 MG, CYCLICAL), INTRAVENOUS
     Route: 042
     Dates: start: 20051102

REACTIONS (2)
  - CARDIOVASCULAR DISORDER [None]
  - DEVICE RELATED INFECTION [None]
